FAERS Safety Report 6081551-3 (Version None)
Quarter: 2009Q1

REPORT INFORMATION
  Report Type: 
  Country: None (occurrence: None)
  Receive Date: 20090213
  Receipt Date: 20090202
  Transmission Date: 20090719
  Serious: Yes (Hospitalization, Other)
  Sender: FDA-Public Use
  Company Number: 2009AP000468

PATIENT
  Age: 62 Year
  Sex: Male

DRUGS (2)
  1. GLIPIZIDE [Suspect]
  2. ISOFLURANE [Suspect]

REACTIONS (2)
  - HEPATITIS C [None]
  - HEPATOCELLULAR INJURY [None]
